FAERS Safety Report 22148671 (Version 1)
Quarter: 2023Q1

REPORT INFORMATION
  Report Type: Spontaneous
  Country: US (occurrence: US)
  Receive Date: 20230328
  Receipt Date: 20230328
  Transmission Date: 20230417
  Serious: Yes (Hospitalization, Other)
  Sender: FDA-Public Use
  Company Number: US-BRISTOL-MYERS SQUIBB COMPANY-2023-043372

PATIENT
  Age: 63 Year
  Sex: Female

DRUGS (1)
  1. ZEPOSIA [Suspect]
     Active Substance: OZANIMOD HYDROCHLORIDE
     Indication: Multiple sclerosis
     Dosage: DOSE : .92MG;     FREQ : DAILY
     Route: 048

REACTIONS (3)
  - Upper limb fracture [Unknown]
  - Sinusitis [Unknown]
  - Fall [Unknown]

NARRATIVE: CASE EVENT DATE: 20230301
